FAERS Safety Report 4333503-9 (Version None)
Quarter: 2004Q2

REPORT INFORMATION
  Report Type: 
  Country: None (occurrence: None)
  Receive Date: 20040401
  Receipt Date: 20040317
  Transmission Date: 20050107
  Serious: Yes (Hospitalization)
  Sender: FDA-Public Use
  Company Number: 194478

PATIENT
  Age: 53 Year
  Sex: Female
  Weight: 136.0791 kg

DRUGS (13)
  1. AVONEX [Suspect]
     Indication: MULTIPLE SCLEROSIS
     Dosage: 30 MCG QW IM
     Route: 030
     Dates: start: 20030901
  2. GLUCOPHAGE [Concomitant]
  3. INSULIN (NOS) [Concomitant]
  4. XOZAAR [Concomitant]
  5. ACCUPRIL [Concomitant]
  6. NEURONTIN [Concomitant]
  7. CARTIA XT [Concomitant]
  8. LIPITOR [Concomitant]
  9. LASIX [Concomitant]
  10. PROTONIX [Concomitant]
  11. FLAX OIL [Concomitant]
  12. MULTIVITAMIN [Concomitant]
  13. CALCIUM [Concomitant]

REACTIONS (5)
  - BLOOD GLUCOSE INCREASED [None]
  - BUNDLE BRANCH BLOCK [None]
  - CONDITION AGGRAVATED [None]
  - DEPRESSION [None]
  - MULTIPLE SCLEROSIS [None]
